FAERS Safety Report 7639804-0 (Version None)
Quarter: 2011Q3

REPORT INFORMATION
  Report Type: 
  Country: None (occurrence: None)
  Receive Date: 20110727
  Receipt Date: 20110722
  Transmission Date: 20111222
  Serious: No
  Sender: FDA-Public Use
  Company Number: US-PFIZER INC-2011013863

PATIENT
  Sex: Female

DRUGS (3)
  1. PREMARIN [Suspect]
     Dosage: 0.45 MG, UNK
  2. PREMARIN [Suspect]
     Dosage: 0.9 MG, UNK
  3. PREMARIN [Suspect]
     Dosage: .625 MG, UNK
     Route: 048

REACTIONS (2)
  - DRUG INEFFECTIVE [None]
  - MENOPAUSAL SYMPTOMS [None]
